FAERS Safety Report 15994362 (Version 1)
Quarter: 2019Q1

REPORT INFORMATION
  Report Type: Other
  Country: IE (occurrence: IE)
  Receive Date: 20190222
  Receipt Date: 20190222
  Transmission Date: 20190418
  Serious: Yes (Other)
  Sender: FDA-Public Use
  Company Number: IE-CELLTRION INC.-2019IE018898

PATIENT

DRUGS (4)
  1. HYDROCORTISONE (GENERIC) [Concomitant]
     Indication: PREMEDICATION
     Dosage: 200 MG, GIVEN PRIOR TO INFLIXIMAB.
     Route: 042
  2. CALCICHEW 500MG CHEWABLE TABLETS [Concomitant]
     Dosage: UNK
     Route: 048
  3. DELTACORTRIL ENTERIC [Concomitant]
     Dosage: 4MG FOR 1 WEEK ON REDUCING DOSE
     Route: 048
  4. INFLIXIMAB (UNKNOWN) [Suspect]
     Active Substance: INFLIXIMAB
     Indication: CROHN^S DISEASE
     Dosage: 2ND DOSE, 5 MG/KG
     Route: 042
     Dates: start: 20181220

REACTIONS (3)
  - Chest discomfort [Recovered/Resolved]
  - Feeling hot [Recovered/Resolved]
  - Flushing [Recovered/Resolved]

NARRATIVE: CASE EVENT DATE: 20181220
